FAERS Safety Report 8696392 (Version 6)
Quarter: 2017Q3

REPORT INFORMATION
  Report Type: Spontaneous
  Country: US (occurrence: US)
  Receive Date: 20120801
  Receipt Date: 20170925
  Transmission Date: 20171128
  Serious: No
  Sender: FDA-Public Use
  Company Number: US-PFIZER INC-2012184636

PATIENT
  Age: 56 Year
  Sex: Female
  Weight: 84 kg

DRUGS (6)
  1. ARTHROTEC [Suspect]
     Active Substance: DICLOFENAC SODIUM\MISOPROSTOL
     Indication: ARTHRITIS
     Dosage: DICLOFENAC 50 MG/MISOPROSTOL 200 MCG, ONCE A DAY
     Route: 048
     Dates: start: 20120816, end: 20120825
  2. FELDENE [Suspect]
     Active Substance: PIROXICAM
     Indication: ARTHRITIS
     Dosage: 10 MG
  3. METOPROLOL. [Concomitant]
     Active Substance: METOPROLOL
     Indication: CARDIAC DISORDER
     Dosage: UNK
  4. PRILOSEC [Concomitant]
     Active Substance: OMEPRAZOLE MAGNESIUM
     Indication: GASTRIC DISORDER
     Dosage: UNK
  5. FELDENE [Suspect]
     Active Substance: PIROXICAM
     Dosage: 20 MG, ONCE A DAY
     Route: 048
     Dates: end: 201207
  6. LISINOPRIL. [Concomitant]
     Active Substance: LISINOPRIL
     Indication: CARDIAC DISORDER
     Dosage: UNK

REACTIONS (6)
  - Stress [Unknown]
  - Weight decreased [Unknown]
  - Gait disturbance [Unknown]
  - Pain [Unknown]
  - Muscle strain [Unknown]
  - Back injury [Unknown]

NARRATIVE: CASE EVENT DATE: 201207
